FAERS Safety Report 10476858 (Version 2)
Quarter: 2016Q3

REPORT INFORMATION
  Report Type: Report from Study
  Country: US (occurrence: US)
  Receive Date: 20140926
  Receipt Date: 20160815
  Transmission Date: 20161109
  Serious: Yes (Hospitalization)
  Sender: FDA-Public Use
  Company Number: US-ROCHE-1425304

PATIENT
  Age: 17 Year
  Sex: Male
  Weight: 28 kg

DRUGS (5)
  1. DDAVP [Concomitant]
     Active Substance: DESMOPRESSIN ACETATE
     Route: 065
  2. LEVOXYL [Concomitant]
     Active Substance: LEVOTHYROXINE SODIUM
     Dosage: 25 MCG
     Route: 065
  3. NUTROPIN AQ [Suspect]
     Active Substance: SOMATROPIN
     Route: 058
  4. NUTROPIN AQ [Suspect]
     Active Substance: SOMATROPIN
     Indication: HYPOPITUITARISM
     Route: 058
  5. CALCITRIOL. [Suspect]
     Active Substance: CALCITRIOL
     Indication: PRODUCT USED FOR UNKNOWN INDICATION
     Route: 065

REACTIONS (10)
  - Sleep apnoea syndrome [Recovered/Resolved]
  - Pollakiuria [Unknown]
  - Polydipsia [Unknown]
  - Asthenia [Unknown]
  - Pain in extremity [Unknown]
  - Myalgia [Unknown]
  - Gait disturbance [Unknown]
  - Balance disorder [Unknown]
  - Hypersensitivity [Not Recovered/Not Resolved]
  - Polyuria [Unknown]

NARRATIVE: CASE EVENT DATE: 201308
